FAERS Safety Report 23809688 (Version 2)
Quarter: 2024Q2

REPORT INFORMATION
  Report Type: Spontaneous
  Country: US (occurrence: US)
  Receive Date: 20240502
  Receipt Date: 20240604
  Transmission Date: 20240716
  Serious: No
  Sender: FDA-Public Use
  Company Number: US-LEX-000241

PATIENT
  Sex: Female

DRUGS (1)
  1. INPEFA [Suspect]
     Active Substance: SOTAGLIFLOZIN
     Indication: Coronary artery disease
     Route: 048
     Dates: start: 20240324, end: 20240324

REACTIONS (2)
  - Illness [Recovered/Resolved]
  - Off label use [Unknown]
